FAERS Safety Report 17220338 (Version 1)
Quarter: 2019Q4

REPORT INFORMATION
  Report Type: Spontaneous
  Country: DE (occurrence: DE)
  Receive Date: 20191231
  Receipt Date: 20191231
  Transmission Date: 20200122
  Serious: No
  Sender: FDA-Public Use
  Company Number: DE-B.BRAUN MEDICAL INC.-2078379

PATIENT
  Age: 55 Year
  Sex: Male

DRUGS (3)
  1. AMINOPLASMAL 15% [Concomitant]
     Dates: start: 20191213
  2. LIPOFUNDIN MCT 20% [Concomitant]
     Dates: start: 20191213
  3. DEXTROSE INJECTIONS USP 0264-7510-00 0264-7510-20 [Suspect]
     Active Substance: DEXTROSE
     Dates: start: 20191213

REACTIONS (1)
  - Hypertension [Recovered/Resolved]
